FAERS Safety Report 7183000-0 (Version None)
Quarter: 2010Q4

REPORT INFORMATION
  Report Type: 
  Country: None (occurrence: None)
  Receive Date: 20101222
  Receipt Date: 20101210
  Transmission Date: 20110411
  Serious: Yes (Other)
  Sender: FDA-Public Use
  Company Number: US-PFIZER INC-2010170700

PATIENT
  Sex: Male

DRUGS (2)
  1. VIAGRA [Suspect]
     Dosage: 25 MG, UNK
  2. VIAGRA [Suspect]
     Dosage: 50 MG, UNK

REACTIONS (2)
  - DRUG INEFFECTIVE [None]
  - VISION BLURRED [None]
